FAERS Safety Report 8012940-5 (Version None)
Quarter: 2011Q4

REPORT INFORMATION
  Report Type: 
  Country: None (occurrence: None)
  Receive Date: 20111229
  Receipt Date: 20111222
  Transmission Date: 20120403
  Serious: Yes (Other)
  Sender: FDA-Public Use
  Company Number: CN-ASTELLAS-2011JP000086

PATIENT
  Age: 42 Year
  Sex: Male

DRUGS (8)
  1. PROGRAF [Suspect]
     Dosage: 4 MG, UNKNOWN/D
     Route: 048
  2. PROGRAF [Suspect]
     Indication: RENAL TRANSPLANT
     Dosage: 3 MG, UNKNOWN/D
     Route: 048
  3. PROGRAF [Suspect]
     Dosage: 2.5 MG, UNKNOWN/D
     Route: 048
  4. MYCOPHENOLATE MOFETIL [Concomitant]
     Route: 065
  5. SIROLIMUS [Concomitant]
     Route: 065
  6. MYCOPHENOLATE SODIUM [Concomitant]
     Route: 048
  7. PROGRAF [Suspect]
     Dosage: 3.5 MG, UNKNOWN/D
     Route: 048
     Dates: start: 20100401
  8. DRUG FOR PROMOTION OF TRYPSIN SECRETION [Concomitant]
     Route: 065

REACTIONS (12)
  - MELANODERMIA [None]
  - ASTHENIA [None]
  - DARK CIRCLES UNDER EYES [None]
  - GASTROOESOPHAGEAL REFLUX DISEASE [None]
  - IMMUNOSUPPRESSANT DRUG LEVEL DECREASED [None]
  - INSOMNIA [None]
  - DIZZINESS [None]
  - ABDOMINAL DISTENSION [None]
  - LIVER DISORDER [None]
  - OLIGURIA [None]
  - BLOOD CREATININE INCREASED [None]
  - TREMOR [None]
